FAERS Safety Report 14587238 (Version 1)
Quarter: 2018Q1

REPORT INFORMATION
  Report Type: Spontaneous
  Country: TH (occurrence: TH)
  Receive Date: 20180301
  Receipt Date: 20180301
  Transmission Date: 20180509
  Serious: Yes (Hospitalization, Other)
  Sender: FDA-Public Use
  Company Number: TH-ASTELLAS-2018US003845

PATIENT
  Sex: Male

DRUGS (2)
  1. XTANDI [Suspect]
     Active Substance: ENZALUTAMIDE
     Indication: HORMONE-REFRACTORY PROSTATE CANCER
     Route: 048
     Dates: start: 201707, end: 2017
  2. XTANDI [Suspect]
     Active Substance: ENZALUTAMIDE
     Dosage: 80 -120MG, ONCE DAILY
     Route: 048
     Dates: start: 20171107

REACTIONS (8)
  - Constipation [Unknown]
  - Fatigue [Recovering/Resolving]
  - Weight decreased [Unknown]
  - Drug dose omission [Unknown]
  - Intestinal fibrosis [Unknown]
  - Haematocrit decreased [Recovering/Resolving]
  - Gait inability [Unknown]
  - Anaemia postoperative [Unknown]

NARRATIVE: CASE EVENT DATE: 2017
